FAERS Safety Report 23050726 (Version 1)
Quarter: 2023Q4

REPORT INFORMATION
  Report Type: Spontaneous
  Country: CN (occurrence: CN)
  Receive Date: 20231010
  Receipt Date: 20231010
  Transmission Date: 20240109
  Serious: Yes (Hospitalization, Other)
  Sender: FDA-Public Use
  Company Number: CN-JNJFOC-20230969152

PATIENT
  Age: 33 Year
  Sex: Male
  Weight: 55 kg

DRUGS (3)
  1. STELARA [Suspect]
     Active Substance: USTEKINUMAB
     Indication: Crohn^s disease
     Route: 041
     Dates: start: 20230816, end: 20230816
  2. STELARA [Suspect]
     Active Substance: USTEKINUMAB
     Indication: Intestinal obstruction
  3. STELARA [Suspect]
     Active Substance: USTEKINUMAB
     Indication: Chronic gastritis

REACTIONS (5)
  - Tachycardia [Recovering/Resolving]
  - Chest discomfort [Recovering/Resolving]
  - Asthenia [Recovering/Resolving]
  - Infusion related reaction [Recovering/Resolving]
  - Drug tolerance decreased [Unknown]

NARRATIVE: CASE EVENT DATE: 20230801
